FAERS Safety Report 6632669-5 (Version None)
Quarter: 2010Q1

REPORT INFORMATION
  Report Type: 
  Country: None (occurrence: None)
  Receive Date: 20100312
  Receipt Date: 20100308
  Transmission Date: 20100710
  Serious: Yes (Life-Threatening, Hospitalization)
  Sender: FDA-Public Use
  Company Number: ES-ELI_LILLY_AND_COMPANY-ES201003001956

PATIENT
  Sex: Male

DRUGS (1)
  1. HUMALOG [Suspect]
     Indication: DIABETES MELLITUS
     Dosage: UNK, UNKNOWN

REACTIONS (2)
  - DIABETIC COMA [None]
  - DRUG INEFFECTIVE [None]
